FAERS Safety Report 6097733-0 (Version None)
Quarter: 2009Q1

REPORT INFORMATION
  Report Type: 
  Country: None (occurrence: None)
  Receive Date: 20090227
  Receipt Date: 20090217
  Transmission Date: 20090719
  Serious: Yes (Hospitalization, Disabling, Other)
  Sender: FDA-Public Use
  Company Number: US-MERCK-0807USA00762

PATIENT
  Age: 81 Year
  Sex: Female

DRUGS (4)
  1. FOSAMAX [Suspect]
     Indication: OSTEOPOROSIS PROPHYLAXIS
     Route: 048
     Dates: start: 20041001, end: 20050501
  2. FOSAMAX [Suspect]
     Route: 048
     Dates: start: 20060901
  3. FOSAMAX [Suspect]
     Route: 048
     Dates: start: 20040101, end: 20070301
  4. FOSAMAX PLUS D [Suspect]
     Route: 065
     Dates: start: 20060401, end: 20060801

REACTIONS (18)
  - ADVERSE DRUG REACTION [None]
  - ANAEMIA [None]
  - APPENDICECTOMY [None]
  - CAROTID ARTERY STENOSIS [None]
  - CARPAL TUNNEL SYNDROME [None]
  - DIARRHOEA [None]
  - FALL [None]
  - HYPERTENSION [None]
  - INFLUENZA [None]
  - LEFT VENTRICULAR HYPERTROPHY [None]
  - ORAL TORUS [None]
  - OSTEONECROSIS [None]
  - PARAESTHESIA [None]
  - RESORPTION BONE INCREASED [None]
  - SINUS BRADYCARDIA [None]
  - SYNCOPE [None]
  - SYNOVIAL CYST [None]
  - TRICUSPID VALVE INCOMPETENCE [None]
